FAERS Safety Report 8885605 (Version 1)
Quarter: 2012Q4

REPORT INFORMATION
  Report Type: 
  Country: US (occurrence: US)
  Receive Date: 20121102
  Receipt Date: 20121102
  Transmission Date: 20130627
  Serious: No
  Sender: FDA-Public Use
  Company Number: US-009507513-1210USA001913

PATIENT
  Age: 77 Year
  Sex: Male

DRUGS (9)
  1. AFLURIA [Suspect]
     Indication: PROPHYLAXIS
     Dates: start: 20120904, end: 20120904
  2. TICE BCG LIVE [Suspect]
     Indication: BLADDER CANCER
     Dosage: UNK
     Dates: start: 20120906
  3. PROSCAR [Concomitant]
  4. CARDURA [Concomitant]
  5. URIBEL [Concomitant]
  6. OMEPRAZOLE [Concomitant]
  7. LOVASTATIN [Concomitant]
  8. HYDROCODONE [Concomitant]
  9. IBUPROFEN [Concomitant]

REACTIONS (3)
  - Blood creatinine increased [Unknown]
  - Influenza like illness [Unknown]
  - Decreased appetite [Unknown]
